FAERS Safety Report 15984927 (Version 2)
Quarter: 2019Q2

REPORT INFORMATION
  Report Type: Report from Study
  Country: CZ (occurrence: CZ)
  Receive Date: 20190220
  Receipt Date: 20190403
  Transmission Date: 20190711
  Serious: Yes (Death, Hospitalization)
  Sender: FDA-Public Use
  Company Number: CZ-PFIZER INC-2019075050

PATIENT
  Age: 68 Year
  Sex: Female

DRUGS (14)
  1. GLIVEC [Suspect]
     Active Substance: IMATINIB MESYLATE
     Indication: CHRONIC MYELOID LEUKAEMIA
     Dosage: UNK
     Dates: start: 20150612, end: 20150831
  2. OMEPRAZOLE. [Concomitant]
     Active Substance: OMEPRAZOLE
     Dosage: UNK
  3. NORMIX [Concomitant]
     Active Substance: RIFAXIMIN
     Dosage: UNK
  4. TASIGNA [Suspect]
     Active Substance: NILOTINIB
     Indication: CHRONIC MYELOID LEUKAEMIA
     Dosage: UNK
     Dates: start: 20090420, end: 20140921
  5. TORECAN [Concomitant]
     Active Substance: THIETHYLPERAZINE MALATE
     Dosage: UNK
  6. VENTER [Concomitant]
     Dosage: UNK
  7. MEGACE [Concomitant]
     Active Substance: MEGESTROL ACETATE
     Dosage: UNK
  8. AUGMENTIN [Concomitant]
     Active Substance: AMOXICILLIN\CLAVULANATE POTASSIUM
     Dosage: UNK
  9. RAMIPRIL. [Concomitant]
     Active Substance: RAMIPRIL
     Dosage: UNK
  10. MYCOMAX [Concomitant]
     Active Substance: FLUCONAZOLE
     Dosage: UNK
  11. FURON [FUROSEMIDE] [Concomitant]
     Dosage: UNK
  12. IMODIUM [Concomitant]
     Active Substance: LOPERAMIDE HYDROCHLORIDE
     Dosage: UNK
  13. BOSULIF [Suspect]
     Active Substance: BOSUTINIB MONOHYDRATE
     Indication: CHRONIC MYELOID LEUKAEMIA
     Dosage: UNK
  14. KALNORMIN [Concomitant]
     Active Substance: POTASSIUM CHLORIDE
     Dosage: UNK

REACTIONS (9)
  - Pyrexia [Fatal]
  - Fungal oesophagitis [Fatal]
  - Haematotoxicity [Fatal]
  - Splenomegaly [Fatal]
  - Neoplasm progression [Fatal]
  - Hypophagia [Fatal]
  - Diarrhoea [Fatal]
  - Nausea [Fatal]
  - Gastrointestinal toxicity [Fatal]

NARRATIVE: CASE EVENT DATE: 20150815
